FAERS Safety Report 9543802 (Version 3)
Quarter: 2013Q3

REPORT INFORMATION
  Report Type: Report from Study
  Country: US (occurrence: US)
  Receive Date: 20130923
  Receipt Date: 20130924
  Transmission Date: 20140515
  Serious: Yes (Hospitalization, Other)
  Sender: FDA-Public Use
  Company Number: US-ABBVIE-13P-163-1143898-00

PATIENT
  Age: 62 Year
  Sex: Female
  Weight: 49.49 kg

DRUGS (7)
  1. HUMIRA [Suspect]
     Indication: RHEUMATOID ARTHRITIS
     Dates: start: 201212, end: 20130827
  2. SULFASALAZINE [Concomitant]
     Indication: PRODUCT USED FOR UNKNOWN INDICATION
  3. CLONAZEPAN [Concomitant]
     Indication: SENSORY DISTURBANCE
  4. MIRTAZAPINE [Concomitant]
     Indication: PRODUCT USED FOR UNKNOWN INDICATION
  5. REMERON [Concomitant]
     Indication: INSOMNIA
  6. PLAQUENIL [Concomitant]
     Indication: RHEUMATOID ARTHRITIS
  7. FIORICET [Concomitant]
     Indication: MIGRAINE

REACTIONS (17)
  - Oropharyngeal pain [Unknown]
  - Chest pain [Unknown]
  - Asthenia [Unknown]
  - Rheumatoid arthritis [Unknown]
  - Dyspepsia [Unknown]
  - Gastritis [Unknown]
  - Angina unstable [Unknown]
  - Tremor [Unknown]
  - Arthralgia [Unknown]
  - Pain in extremity [Unknown]
  - Pain in extremity [Unknown]
  - Local swelling [Recovering/Resolving]
  - Muscular weakness [Not Recovered/Not Resolved]
  - Pulmonary mass [Unknown]
  - Cerebral small vessel ischaemic disease [Unknown]
  - Sinusitis [Unknown]
  - Bundle branch block right [Recovering/Resolving]
